FAERS Safety Report 4651973-3 (Version None)
Quarter: 2005Q2

REPORT INFORMATION
  Report Type: 
  Country: None (occurrence: None)
  Receive Date: 20050502
  Receipt Date: 20050415
  Transmission Date: 20051028
  Serious: Yes (Hospitalization)
  Sender: FDA-Public Use
  Company Number: 2004BI001622

PATIENT
  Age: 54 Year
  Sex: Female

DRUGS (7)
  1. AVONEX [Suspect]
     Indication: MULTIPLE SCLEROSIS
     Dosage: 30 UG; QW; IM
     Route: 030
     Dates: start: 20001201
  2. DIOVAN HCT [Concomitant]
  3. NEXUM [Concomitant]
  4. ATENOLOL [Concomitant]
  5. STRADIOL [Concomitant]
  6. ALLEGRA [Concomitant]
  7. MULTIPLE VITAMIN [Concomitant]

REACTIONS (2)
  - ABDOMINAL PAIN [None]
  - PANCREATIC DISORDER [None]
